FAERS Safety Report 6182360-7 (Version None)
Quarter: 2009Q2

REPORT INFORMATION
  Report Type: 
  Country: None (occurrence: None)
  Receive Date: 20090505
  Receipt Date: 20090505
  Transmission Date: 20091009
  Serious: Yes (Death, Life-Threatening)
  Sender: FDA-Public Use
  Company Number: None

PATIENT
  Sex: Male

DRUGS (7)
  1. REVLIMID [Suspect]
     Indication: MYELODYSPLASTIC SYNDROME
     Dosage: 5MG DAILY ORALLY
     Route: 048
     Dates: start: 20080917, end: 20081023
  2. ZOLPIDEM [Concomitant]
  3. MIDODRINE [Concomitant]
  4. LEVOTHROID [Concomitant]
  5. GLIPIZIDE [Concomitant]
  6. MEGESTROL ACETATE [Concomitant]
  7. AMINOCAPROIC ACID [Concomitant]

REACTIONS (3)
  - DISEASE PROGRESSION [None]
  - EPISTAXIS [None]
  - THROMBOCYTOPENIA [None]
